FAERS Safety Report 13193260 (Version 5)
Quarter: 2020Q3

REPORT INFORMATION
  Report Type: Spontaneous
  Country: US (occurrence: US)
  Receive Date: 20170207
  Receipt Date: 20200811
  Transmission Date: 20201102
  Serious: Yes (Hospitalization, Other)
  Sender: FDA-Public Use
  Company Number: US-PFIZER INC-2017047822

PATIENT
  Age: 43 Year
  Sex: Male

DRUGS (3)
  1. TESTOSTERONE CIPIONATE [Suspect]
     Active Substance: TESTOSTERONE
     Indication: PHYSICAL FITNESS TRAINING
     Dosage: UNK (INTERMITTENTLY OVER A PERIOD OF 5 YEARS)
  2. TRENBOLONE [Suspect]
     Active Substance: TRENBOLONE
     Indication: PHYSICAL FITNESS TRAINING
     Dosage: UNK (INTERMITTENTLY OVER A PERIOD OF 5 YEARS)
  3. ESCITALOPRAM [Concomitant]
     Active Substance: ESCITALOPRAM OXALATE
     Dosage: 20 MG, UNK

REACTIONS (3)
  - Renal infarct [Recovering/Resolving]
  - Off label use [Unknown]
  - Product use in unapproved indication [Unknown]
